FAERS Safety Report 5056261-1 (Version None)
Quarter: 2006Q2

REPORT INFORMATION
  Report Type: 
  Country: None (occurrence: None)
  Receive Date: 20060616
  Receipt Date: 20051101
  Transmission Date: 20061013
  Serious: Yes (Hospitalization)
  Sender: FDA-Public Use
  Company Number: 200518131US

PATIENT
  Age: 6 Year
  Sex: Female
  Weight: 25 kg

DRUGS (3)
  1. LANTUS [Suspect]
     Indication: DIABETES MELLITUS INSULIN-DEPENDENT
     Dosage: 12 U QAM SC
     Route: 058
     Dates: start: 20050101
  2. OPTICLIK [Suspect]
     Dates: start: 20051017
  3. HUMALOG [Concomitant]

REACTIONS (3)
  - ACCIDENTAL OVERDOSE [None]
  - BLOOD GLUCOSE DECREASED [None]
  - BLOOD GLUCOSE INCREASED [None]
